FAERS Safety Report 23862296 (Version 4)
Quarter: 2024Q2

REPORT INFORMATION
  Report Type: Spontaneous
  Country: US (occurrence: US)
  Receive Date: 20240516
  Receipt Date: 20240531
  Transmission Date: 20240716
  Serious: Yes (Other)
  Sender: FDA-Public Use
  Company Number: US-PFIZER INC-202400107890

PATIENT
  Sex: Female

DRUGS (1)
  1. TRIAZOLAM [Suspect]
     Active Substance: TRIAZOLAM
     Indication: Sleep disorder
     Dosage: 0.25 MG, DAILY; EVERY NIGHT BEFORE BEDTIME
     Route: 048
     Dates: start: 202309

REACTIONS (7)
  - Drug dependence [Unknown]
  - Drug ineffective [Unknown]
  - Off label use [Unknown]
  - Product use issue [Unknown]
  - Product prescribing issue [Unknown]
  - Vertigo [Unknown]
  - Memory impairment [Unknown]
